FAERS Safety Report 9807601 (Version 1)
Quarter: 2014Q1

REPORT INFORMATION
  Report Type: Spontaneous
  Country: US (occurrence: US)
  Receive Date: 20140110
  Receipt Date: 20140110
  Transmission Date: 20141002
  Serious: Yes (Hospitalization, Other)
  Sender: FDA-Public Use
  Company Number: US-DENDREON CORPORATION-2013PROUSA03434

PATIENT
  Age: 80 Year
  Sex: Male
  Weight: 97.8 kg

DRUGS (10)
  1. PROVENGE [Suspect]
     Indication: PROSTATE CANCER METASTATIC
     Dosage: 250 ML, SINGLE
     Route: 042
     Dates: start: 20110520, end: 20110520
  2. PROVENGE [Suspect]
     Dosage: 250 ML, SINGLE
     Route: 042
     Dates: start: 20110603, end: 20110603
  3. PROVENGE [Suspect]
     Dosage: 250 ML, SINGLE
     Route: 042
     Dates: start: 20110617, end: 20110617
  4. LUPRON [Concomitant]
     Indication: PROSTATE CANCER
     Dosage: UNK
     Dates: start: 2002
  5. KETOCONAZOLE [Concomitant]
     Indication: PROSTATE CANCER
     Dosage: 400 MG, TID
     Route: 048
     Dates: start: 20110905
  6. HYDROCORTISONE [Concomitant]
     Indication: PROPHYLAXIS
     Dosage: 20 MG, BID
     Route: 048
  7. COUMADIN [Concomitant]
     Indication: ATRIAL FIBRILLATION
  8. METOPROLOL [Concomitant]
     Indication: ATRIAL FIBRILLATION
  9. TAMSULOSIN [Concomitant]
     Indication: PRODUCT USED FOR UNKNOWN INDICATION
     Dosage: 0.4 MG, QD
  10. CALCIUM WITH VITAMIN D [Concomitant]
     Indication: OSTEOPOROSIS

REACTIONS (4)
  - Diastolic dysfunction [Recovered/Resolved]
  - Renal failure [Not Recovered/Not Resolved]
  - Upper gastrointestinal haemorrhage [Unknown]
  - Anaemia [Not Recovered/Not Resolved]
